FAERS Safety Report 11244044 (Version 1)
Quarter: 2015Q3

REPORT INFORMATION
  Report Type: Spontaneous
  Country: JP (occurrence: JP)
  Receive Date: 20150707
  Receipt Date: 20150707
  Transmission Date: 20151125
  Serious: Yes (Hospitalization)
  Sender: FDA-Public Use
  Company Number: JP-PFIZER INC-2015160537

PATIENT
  Age: 3 Year
  Sex: Male

DRUGS (2)
  1. VFEND [Suspect]
     Active Substance: VORICONAZOLE
     Dosage: 5 MG/KG, 2X/DAY
     Route: 048
     Dates: start: 2015
  2. VFEND [Suspect]
     Active Substance: VORICONAZOLE
     Dosage: UNK
     Route: 042
     Dates: start: 201504, end: 2015

REACTIONS (3)
  - Blood potassium decreased [Unknown]
  - Malaise [Unknown]
  - Drug level increased [Unknown]

NARRATIVE: CASE EVENT DATE: 2015
